FAERS Safety Report 9743246 (Version 1)
Quarter: 2013Q4

REPORT INFORMATION
  Report Type: Spontaneous
  Country: US (occurrence: US)
  Receive Date: 20131210
  Receipt Date: 20131210
  Transmission Date: 20140711
  Serious: No
  Sender: FDA-Public Use
  Company Number: US-GILEAD-2009-0025146

PATIENT
  Age: 36 Year
  Sex: Female
  Weight: 81.65 kg

DRUGS (9)
  1. LETAIRIS [Suspect]
     Indication: PULMONARY ARTERIAL HYPERTENSION
     Route: 048
     Dates: start: 20091019
  2. TRUVADA [Concomitant]
  3. EXCEDRIN [Concomitant]
  4. ZITHROMAX [Concomitant]
  5. NORVIR [Concomitant]
  6. CLARITIN [Concomitant]
  7. PREZISTA [Concomitant]
  8. IMODIUM A-D [Concomitant]
  9. TYLENOL [Concomitant]

REACTIONS (6)
  - Cough [Not Recovered/Not Resolved]
  - Fatigue [Not Recovered/Not Resolved]
  - Pain in extremity [Not Recovered/Not Resolved]
  - Abdominal discomfort [Not Recovered/Not Resolved]
  - Heart rate increased [Not Recovered/Not Resolved]
  - Headache [Not Recovered/Not Resolved]
